FAERS Safety Report 24587130 (Version 2)
Quarter: 2025Q1

REPORT INFORMATION
  Report Type: Spontaneous
  Country: US (occurrence: US)
  Receive Date: 20241107
  Receipt Date: 20250101
  Transmission Date: 20250408
  Serious: Yes (Other)
  Sender: SANOFI AVENTIS
  Company Number: US-SA-2024SA319268

PATIENT
  Age: 55 Year
  Sex: Female

DRUGS (18)
  1. DUPIXENT [Suspect]
     Active Substance: DUPILUMAB
     Indication: Asthma
     Dosage: 200 MG, QOW
     Route: 058
  2. BIOTIN [Concomitant]
     Active Substance: BIOTIN
  3. CETIRIZINE HCL [Concomitant]
     Active Substance: CETIRIZINE HYDROCHLORIDE
  4. EZETIMIBE [Concomitant]
     Active Substance: EZETIMIBE
  5. FLUTICASONE PROPIONATE [Concomitant]
     Active Substance: FLUTICASONE PROPIONATE
  6. GABAPENTIN [Concomitant]
     Active Substance: GABAPENTIN
  7. JOINT HEALTH [Concomitant]
     Active Substance: AMINO ACIDS\BARLEY MALT
  8. LAMOTRIGINE [Concomitant]
     Active Substance: LAMOTRIGINE
  9. LUBIPROSTONE [Concomitant]
     Active Substance: LUBIPROSTONE
  10. METHYLPHENIDATE HYDROCHLORIDE [Concomitant]
     Active Substance: METHYLPHENIDATE HYDROCHLORIDE
  11. MONTELUKAST SODIUM [Concomitant]
     Active Substance: MONTELUKAST SODIUM
  12. OMEPRAZOLE [Concomitant]
     Active Substance: OMEPRAZOLE
  13. OXCARBAZEPINE [Concomitant]
     Active Substance: OXCARBAZEPINE
  14. TAMOXIFEN CITRATE [Concomitant]
     Active Substance: TAMOXIFEN CITRATE
  15. TRAZODONE HCL [Concomitant]
     Active Substance: TRAZODONE HYDROCHLORIDE
  16. TRELEGY ELLIPTA [Concomitant]
     Active Substance: FLUTICASONE FUROATE\UMECLIDINIUM BROMIDE\VILANTEROL TRIFENATATE
  17. VENLAFAXINE [Concomitant]
     Active Substance: VENLAFAXINE HYDROCHLORIDE
  18. VITAMIN D NOS [Concomitant]
     Active Substance: CHOLECALCIFEROL\ERGOCALCIFEROL

REACTIONS (7)
  - Bell^s palsy [Not Recovered/Not Resolved]
  - Pneumonia [Recovering/Resolving]
  - Cough [Recovering/Resolving]
  - Dyspnoea [Recovering/Resolving]
  - Hypoaesthesia [Not Recovered/Not Resolved]
  - Hypertension [Not Recovered/Not Resolved]
  - Headache [Not Recovered/Not Resolved]

NARRATIVE: CASE EVENT DATE: 20241101
